FAERS Safety Report 8212232-5 (Version None)
Quarter: 2012Q1

REPORT INFORMATION
  Report Type: 
  Country: None (occurrence: None)
  Receive Date: 20120315
  Receipt Date: 20120314
  Transmission Date: 20120608
  Serious: Yes (Hospitalization)
  Sender: FDA-Public Use
  Company Number: US-ROCHE-1047220

PATIENT
  Age: 56 Year
  Sex: Female
  Weight: 77.3 kg

DRUGS (4)
  1. HERCEPTIN [Suspect]
     Dosage: OVER 30-60 MINUTES ON DAY 1 FOR CYCLES 2-6
     Dates: start: 20111221
  2. HERCEPTIN [Suspect]
     Indication: BREAST CANCER
     Dosage: OVER 90 MINUTES ON DAY 1 CYCLE 1 ONLY
     Dates: start: 20111221
  3. DOCETAXEL [Suspect]
     Indication: BREAST CANCER
     Dosage: OVER 60 MINUTES ON DAY 1 FOR 6 CYCLES
     Route: 042
  4. CYCLOPHOSPHAMIDE [Suspect]
     Indication: BREAST CANCER
     Dosage: OVER 30 MINUTES ON DAY 1 FOR 6 CYCLES
     Route: 042

REACTIONS (1)
  - CAECITIS [None]
